FAERS Safety Report 8216812-2 (Version None)
Quarter: 2012Q1

REPORT INFORMATION
  Report Type: 
  Country: None (occurrence: None)
  Receive Date: 20120316
  Receipt Date: 20120309
  Transmission Date: 20120608
  Serious: Yes (Hospitalization)
  Sender: FDA-Public Use
  Company Number: JP-MERCK-1202USA04299

PATIENT
  Age: 62 Year
  Sex: Female
  Weight: 45 kg

DRUGS (6)
  1. PREDNISOLONE [Suspect]
     Indication: RHEUMATOID ARTHRITIS
     Route: 048
     Dates: start: 20100621
  2. SELTOUCH [Concomitant]
     Route: 065
     Dates: start: 20110406
  3. SELBEX [Concomitant]
     Route: 048
     Dates: start: 20110906, end: 20120223
  4. PEPCID RPD [Suspect]
     Route: 048
     Dates: start: 20060301, end: 20120228
  5. ENBREL [Concomitant]
     Indication: RHEUMATOID ARTHRITIS
     Route: 065
     Dates: start: 20101022
  6. MOBIC [Suspect]
     Indication: RHEUMATOID ARTHRITIS
     Dosage: UID/QID
     Route: 048
     Dates: start: 20110906, end: 20120223

REACTIONS (1)
  - RHABDOMYOLYSIS [None]
